FAERS Safety Report 5892690-1 (Version None)
Quarter: 2008Q3

REPORT INFORMATION
  Report Type: 
  Country: None (occurrence: None)
  Receive Date: 20080923
  Receipt Date: 20080915
  Transmission Date: 20090109
  Serious: Yes (Hospitalization)
  Sender: FDA-Public Use
  Company Number: PHHY2008IT21746

PATIENT
  Sex: Male

DRUGS (3)
  1. EXELON [Suspect]
     Indication: DEMENTIA
     Dosage: 6 MG
     Route: 048
     Dates: start: 20060101
  2. DILTIAZEM HCL [Concomitant]
     Indication: HYPERTENSIVE CARDIOMYOPATHY
     Dosage: 60 MG
     Route: 048
     Dates: start: 20030101
  3. CARDIOPIRIN [Concomitant]
     Indication: HYPERTENSIVE CARDIOMYOPATHY
     Dosage: 100 MG

REACTIONS (1)
  - HEPATITIS CHOLESTATIC [None]
